FAERS Safety Report 7774703-5 (Version None)
Quarter: 2011Q3

REPORT INFORMATION
  Report Type: 
  Country: None (occurrence: None)
  Receive Date: 20110923
  Receipt Date: 20110915
  Transmission Date: 20111222
  Serious: Yes (Other)
  Sender: FDA-Public Use
  Company Number: JP-ROCHE-804186

PATIENT
  Sex: Male

DRUGS (2)
  1. MIDAZOLAM HCL [Suspect]
     Indication: ENDOSCOPY UPPER GASTROINTESTINAL TRACT
     Route: 065
  2. FLUMAZENIL [Suspect]
     Route: 065

REACTIONS (3)
  - SHOCK [None]
  - DELAYED RECOVERY FROM ANAESTHESIA [None]
  - BLOOD PRESSURE DECREASED [None]
